FAERS Safety Report 12587620 (Version 1)
Quarter: 2016Q3

REPORT INFORMATION
  Report Type: Spontaneous
  Country: US (occurrence: US)
  Receive Date: 20160725
  Receipt Date: 20160725
  Transmission Date: 20161109
  Serious: No
  Sender: FDA-Public Use
  Company Number: US-MYLANLABS-2016M1012406

PATIENT
  Age: 29 Year
  Sex: Male
  Weight: 136.5 kg

DRUGS (4)
  1. HALOPERIDOL. [Suspect]
     Active Substance: HALOPERIDOL
     Indication: BIPOLAR DISORDER
     Dosage: UNK
     Route: 030
     Dates: start: 201511
  2. HALOPERIDOL TABLETS, USP [Suspect]
     Active Substance: HALOPERIDOL
     Indication: BIPOLAR DISORDER
     Dosage: 5 MG, BID
     Route: 048
     Dates: start: 201510
  3. BENZTROPINE [Concomitant]
     Active Substance: BENZTROPINE
     Dosage: UNK, TID
  4. LITHIUM. [Concomitant]
     Active Substance: LITHIUM

REACTIONS (3)
  - Dyskinesia [Not Recovered/Not Resolved]
  - Weight increased [Not Recovered/Not Resolved]
  - Tic [Not Recovered/Not Resolved]

NARRATIVE: CASE EVENT DATE: 201602
